FAERS Safety Report 19166919 (Version 1)
Quarter: 2021Q2

REPORT INFORMATION
  Report Type: Spontaneous
  Country: NL (occurrence: NL)
  Receive Date: 20210422
  Receipt Date: 20210422
  Transmission Date: 20210717
  Serious: Yes (Other)
  Sender: FDA-Public Use
  Company Number: NL-AUROBINDO-AUR-APL-2021-015686

PATIENT
  Age: 43 Year
  Sex: Female
  Weight: 66 kg

DRUGS (2)
  1. MODERNA COVID?19 VACCINE [Suspect]
     Active Substance: CX-024414
     Indication: COVID-19 IMMUNISATION
     Dosage: 1 DOSAGE FORM
     Route: 065
     Dates: start: 20210306
  2. VALACICLOVIR 500MG FILM?COATED TABLETS [Suspect]
     Active Substance: VALACYCLOVIR HYDROCHLORIDE
     Indication: PRODUCT USED FOR UNKNOWN INDICATION
     Dosage: 2X4TABLETS, AFTER 8 HOURS THE SECOND FOUR TABLETS (AT 9AM AND 4PM), SEE FARM COMPASS.
     Route: 065
     Dates: start: 20210305

REACTIONS (11)
  - Myalgia [Recovered/Resolved]
  - Injection site pain [Recovering/Resolving]
  - Injection site inflammation [Recovering/Resolving]
  - Taste disorder [Recovered/Resolved]
  - Malaise [Recovered/Resolved]
  - Nausea [Recovered/Resolved]
  - Fatigue [Recovered/Resolved]
  - Headache [Recovered/Resolved]
  - Pyrexia [Recovered/Resolved]
  - Injection site swelling [Recovering/Resolving]
  - Chills [Recovered/Resolved]

NARRATIVE: CASE EVENT DATE: 20210306
